FAERS Safety Report 13632310 (Version 1)
Quarter: 2017Q2

REPORT INFORMATION
  Report Type: Spontaneous
  Country: GB (occurrence: GB)
  Receive Date: 20170608
  Receipt Date: 20170608
  Transmission Date: 20170830
  Serious: Yes (Death, Other)
  Sender: FDA-Public Use
  Company Number: GB-TEVA-776740ACC

PATIENT
  Age: 5 Decade
  Sex: Female

DRUGS (8)
  1. DOXORUBICIN HCL [Suspect]
     Active Substance: DOXORUBICIN HYDROCHLORIDE
     Indication: HODGKIN^S DISEASE
     Dates: start: 20150114
  2. FUROSEMIDE. [Concomitant]
     Active Substance: FUROSEMIDE
  3. BEZAFIBRATE [Concomitant]
     Active Substance: BEZAFIBRATE
  4. CLOPIDOGREL [Concomitant]
     Active Substance: CLOPIDOGREL BISULFATE
  5. EPLERENONE. [Concomitant]
     Active Substance: EPLERENONE
  6. PARACETAMOL [Concomitant]
     Active Substance: ACETAMINOPHEN
  7. RAMIPRIL. [Concomitant]
     Active Substance: RAMIPRIL
  8. BISOPROLOL [Concomitant]
     Active Substance: BISOPROLOL

REACTIONS (3)
  - Ejection fraction decreased [Fatal]
  - Cardiac arrest [Not Recovered/Not Resolved]
  - Cardiogenic shock [Not Recovered/Not Resolved]
